FAERS Safety Report 4308878-7 (Version None)
Quarter: 2004Q1

REPORT INFORMATION
  Report Type: 
  Country: None (occurrence: None)
  Receive Date: 20040227
  Receipt Date: 20040212
  Transmission Date: 20041129
  Serious: Yes (Hospitalization)
  Sender: FDA-Public Use
  Company Number: 2004JP000200

PATIENT
  Age: 47 Year
  Sex: Male
  Weight: 85 kg

DRUGS (20)
  1. PROGRAF [Suspect]
     Indication: RENAL TRANSPLANT
     Dosage: 1.50 MG, BID, ORAL   SEE IMAGE
     Route: 048
     Dates: start: 19961112, end: 19961113
  2. PROGRAF [Suspect]
     Indication: RENAL TRANSPLANT
     Dosage: 1.50 MG, BID, ORAL   SEE IMAGE
     Route: 048
     Dates: start: 19961114, end: 19961114
  3. PROGRAF [Suspect]
     Indication: RENAL TRANSPLANT
     Dosage: 1.50 MG, BID, ORAL   SEE IMAGE
     Route: 048
     Dates: start: 19961115, end: 19990407
  4. PROGRAF [Suspect]
     Indication: RENAL TRANSPLANT
     Dosage: 1.50 MG, BID, ORAL   SEE IMAGE
     Route: 048
     Dates: start: 20000323, end: 20030416
  5. PROGRAF [Suspect]
     Indication: RENAL TRANSPLANT
     Dosage: 1.50 MG, BID, ORAL   SEE IMAGE
     Route: 048
     Dates: start: 20030417
  6. BUFFERIN /JPN/(ALUMINUM GLYCINATE) [Concomitant]
  7. SIGMART (NICORANDIL) [Concomitant]
  8. WARFARIN SODIUM [Concomitant]
  9. CELLCEPT [Concomitant]
  10. URINORM (BENZBROMARONE) [Concomitant]
  11. FAMOTIDINE [Concomitant]
  12. MEDROL [Concomitant]
  13. HACHIMIJIO-GAN (HERBAL EXTRACTS NOS) [Concomitant]
  14. PURSENNID (SENNA LEAF) [Concomitant]
  15. ROCORNAL (TRAPIDIL) [Concomitant]
  16. AMIODARONE HCL [Concomitant]
  17. METOPROLOL TARTRATE [Concomitant]
  18. BLOPRESS(CANDESARTAN CILEXETIL) [Concomitant]
  19. LIPITOR [Concomitant]
  20. MIOCHOL (ACETYLCHOLINE CHLORIDE) [Concomitant]

REACTIONS (6)
  - ABDOMINAL PAIN [None]
  - ACUTE MYOCARDIAL INFARCTION [None]
  - ATRIAL FIBRILLATION [None]
  - DEEP VEIN THROMBOSIS [None]
  - RENAL IMPAIRMENT [None]
  - VENTRICULAR TACHYCARDIA [None]
